FAERS Safety Report 6718568-9 (Version None)
Quarter: 2010Q2

REPORT INFORMATION
  Report Type: 
  Country: None (occurrence: None)
  Receive Date: 20100504
  Receipt Date: 20100416
  Transmission Date: 20101027
  Serious: Yes (Hospitalization, Other)
  Sender: FDA-Public Use
  Company Number: 236828K09USA

PATIENT
  Age: 39 Year
  Sex: Male

DRUGS (3)
  1. REBIF [Suspect]
     Indication: MULTIPLE SCLEROSIS
     Dosage: 44 MCG, 3 IN 1 WK, SUBCUTANEOUS
     Route: 058
     Dates: start: 20081016, end: 20100101
  2. TYLENOL (COTYLENOL) [Concomitant]
  3. UNSPECIFIED MEDICATIONS (ALL OTHER THERAPEUTIC PRODUCTS) [Concomitant]

REACTIONS (4)
  - ABASIA [None]
  - ASTHENIA [None]
  - CONVULSION [None]
  - MULTIPLE SCLEROSIS RELAPSE [None]
